FAERS Safety Report 5631032-3 (Version None)
Quarter: 2008Q1

REPORT INFORMATION
  Report Type: 
  Country: None (occurrence: None)
  Receive Date: 20080219
  Receipt Date: 20080212
  Transmission Date: 20080703
  Serious: Yes (Hospitalization)
  Sender: FDA-Public Use
  Company Number: US-PFIZER INC-2007105009

PATIENT
  Sex: Female
  Weight: 42 kg

DRUGS (4)
  1. SUTENT [Suspect]
     Indication: MALIGNANT MELANOMA
     Route: 048
  2. BACTRIM [Concomitant]
     Indication: URINARY TRACT INFECTION
     Dosage: FREQ:ONE TABLET 2X DAY
     Dates: start: 20071128, end: 20071202
  3. POTASSIUM CHLORIDE [Concomitant]
  4. FOSAMAX [Concomitant]

REACTIONS (2)
  - FAILURE TO THRIVE [None]
  - HYPOTENSION [None]
